FAERS Safety Report 14805223 (Version 1)
Quarter: 2018Q2

REPORT INFORMATION
  Report Type: Spontaneous
  Country: US (occurrence: US)
  Receive Date: 20180425
  Receipt Date: 20180425
  Transmission Date: 20180711
  Serious: Yes (Life-Threatening)
  Sender: FDA-Public Use
  Company Number: US-PFIZER INC-2018165523

PATIENT
  Age: 24 Year
  Sex: Female

DRUGS (2)
  1. POTASSIUM CHLORIDE. [Suspect]
     Active Substance: POTASSIUM CHLORIDE
     Indication: ECTOPIC PREGNANCY
     Dosage: UNK
  2. METHOTREXATE SODIUM. [Suspect]
     Active Substance: METHOTREXATE SODIUM
     Indication: ECTOPIC PREGNANCY
     Dosage: UNK

REACTIONS (3)
  - Product use in unapproved indication [Unknown]
  - Haemorrhagic arteriovenous malformation [Recovered/Resolved]
  - Product use issue [Unknown]
